FAERS Safety Report 24143534 (Version 1)
Quarter: 2024Q3

REPORT INFORMATION
  Report Type: Other
  Country: NL (occurrence: NL)
  Receive Date: 20240727
  Receipt Date: 20240727
  Transmission Date: 20241017
  Serious: Yes (Life-Threatening)
  Sender: GLENMARK
  Company Number: None

PATIENT

DRUGS (2)
  1. EZETIMIBE [Suspect]
     Active Substance: EZETIMIBE
     Indication: Blood cholesterol abnormal
     Dosage: 10 MILLIGRAM, OD (1X PERDAG)
     Route: 065
     Dates: start: 20240515, end: 20240522
  2. REPATHA [Suspect]
     Active Substance: EVOLOCUMAB
     Indication: Blood cholesterol abnormal
     Dosage: 1 DOSAGE FORM, EVERY 2 WEEKS (1X PER 2 WEKEN)
     Route: 065
     Dates: start: 20240515, end: 20240529

REACTIONS (3)
  - Face oedema [Not Recovered/Not Resolved]
  - Rash pruritic [Not Recovered/Not Resolved]
  - Rash [Not Recovered/Not Resolved]
